FAERS Safety Report 9245082 (Version 4)
Quarter: 2013Q4

REPORT INFORMATION
  Report Type: Report from Study
  Country: BR (occurrence: BR)
  Receive Date: 20130422
  Receipt Date: 20131001
  Transmission Date: 20140711
  Serious: Yes (Hospitalization, Other)
  Sender: FDA-Public Use
  Company Number: PHHY2013BR037835

PATIENT
  Sex: Male
  Weight: 67 kg

DRUGS (10)
  1. FORASEQ [Suspect]
     Indication: FATIGUE
     Dosage: 2 DF, QD
  2. FORASEQ [Suspect]
     Indication: OFF LABEL USE
     Dosage: 1 DF, BID
  3. SIMVASTATIN [Concomitant]
     Indication: BLOOD CHOLESTEROL ABNORMAL
     Dosage: 1 DF, DAILY
     Route: 048
  4. PANTOPRAZOLE [Concomitant]
     Indication: GASTROOESOPHAGEAL REFLUX DISEASE
     Dosage: 1 DF, QD
     Route: 048
  5. BROMOPRIDE [Concomitant]
     Indication: GASTRIC DISORDER
     Dosage: 1 DF, DAILY
     Route: 048
  6. BROMOPRIDE [Concomitant]
     Indication: REFLUX GASTRITIS
  7. SPIRIVA [Concomitant]
     Indication: EMPHYSEMA
     Dosage: UNK UKN, BID
  8. ESOMAX [Concomitant]
     Indication: REFLUX GASTRITIS
     Dosage: 1 DF, QD
     Route: 048
  9. MIDAZOLAM MALEATE [Concomitant]
     Indication: SLEEP DISORDER
     Dosage: 1 DF, QD
     Route: 048
  10. SPIRIVA RESPIMAT [Concomitant]
     Indication: LUNG DISORDER
     Dosage: 1 DF, QD

REACTIONS (8)
  - Emphysema [Recovered/Resolved]
  - Condition aggravated [Recovered/Resolved]
  - Pneumonia [Recovering/Resolving]
  - Insomnia [Not Recovered/Not Resolved]
  - Fatigue [Recovered/Resolved]
  - Influenza [Unknown]
  - Weight decreased [Not Recovered/Not Resolved]
  - Blood cholesterol abnormal [Unknown]
